FAERS Safety Report 4582166-6 (Version None)
Quarter: 2005Q1

REPORT INFORMATION
  Report Type: 
  Country: None (occurrence: None)
  Receive Date: 20050210
  Receipt Date: 20050126
  Transmission Date: 20050727
  Serious: Yes (Other)
  Sender: FDA-Public Use
  Company Number: 2005023170

PATIENT
  Sex: Female

DRUGS (1)
  1. CELEBREX [Suspect]
     Indication: ILL-DEFINED DISORDER
     Dosage: ORAL
     Route: 048
     Dates: start: 20050125

REACTIONS (5)
  - ERYTHEMA [None]
  - EYE SWELLING [None]
  - NERVOUSNESS [None]
  - SKIN TIGHTNESS [None]
  - THROAT TIGHTNESS [None]
